FAERS Safety Report 4487760-9 (Version None)
Quarter: 2004Q4

REPORT INFORMATION
  Report Type: 
  Country: None (occurrence: None)
  Receive Date: 20041028
  Receipt Date: 20041021
  Transmission Date: 20050328
  Serious: Yes (Other)
  Sender: FDA-Public Use
  Company Number: 200418126US

PATIENT
  Age: 87 Year
  Sex: Male
  Weight: 77.3 kg

DRUGS (3)
  1. NASACORT AQ [Suspect]
     Indication: POSTNASAL DRIP
     Dosage: DOSE: 1-2 SPRAYS
     Dates: end: 20040901
  2. DIURETICS [Concomitant]
     Dosage: DOSE: UNK
  3. ASPIRIN [Concomitant]
     Route: 048

REACTIONS (6)
  - CATARACT OPERATION [None]
  - DACRYOSTENOSIS ACQUIRED [None]
  - DEPRESSION [None]
  - EYE DISORDER [None]
  - EYE IRRITATION [None]
  - LACRIMATION INCREASED [None]
